FAERS Safety Report 9063996 (Version 1)
Quarter: 2013Q1

REPORT INFORMATION
  Report Type: Report from Study
  Country: US (occurrence: US)
  Receive Date: 20130131
  Receipt Date: 20130131
  Transmission Date: 20140127
  Serious: No
  Sender: FDA-Public Use
  Company Number: US-ABBOTT-12P-163-1017539-00

PATIENT
  Age: 39 Year
  Sex: Female

DRUGS (5)
  1. HUMIRA [Suspect]
     Indication: CROHN^S DISEASE
     Route: 058
     Dates: start: 20121112, end: 20121112
  2. HUMIRA [Suspect]
     Route: 058
     Dates: start: 20121126
  3. IMURAN [Concomitant]
     Indication: CROHN^S DISEASE
     Dosage: 50MG DAILY
  4. LORAZEPAM [Concomitant]
     Indication: ANXIETY
  5. AMBIEN [Concomitant]
     Indication: INSOMNIA
     Dosage: AT BEDTIME AS NEEDED

REACTIONS (7)
  - Movement disorder [Not Recovered/Not Resolved]
  - Pain in extremity [Not Recovered/Not Resolved]
  - Musculoskeletal stiffness [Not Recovered/Not Resolved]
  - Movement disorder [Not Recovered/Not Resolved]
  - Abasia [Not Recovered/Not Resolved]
  - Paraesthesia [Not Recovered/Not Resolved]
  - Oedema peripheral [Not Recovered/Not Resolved]
